FAERS Safety Report 22335724 (Version 1)
Quarter: 2023Q2

REPORT INFORMATION
  Report Type: Spontaneous
  Country: ES (occurrence: ES)
  Receive Date: 20230518
  Receipt Date: 20230518
  Transmission Date: 20230722
  Serious: Yes (Hospitalization, Other)
  Sender: FDA-Public Use
  Company Number: None

PATIENT
  Age: 63 Year
  Sex: Male
  Weight: 57.2 kg

DRUGS (38)
  1. GEMCITABINE [Suspect]
     Active Substance: GEMCITABINE
     Indication: Product used for unknown indication
     Dosage: DOSE GIVEN ON DAY 1, 8 AND 15
     Route: 065
     Dates: start: 20230403, end: 20230403
  2. GEMCITABINE [Suspect]
     Active Substance: GEMCITABINE
     Dosage: DOSE GIVEN ON DAY 1, 8 AND 15
     Route: 065
     Dates: start: 20230116, end: 20230116
  3. GEMCITABINE [Suspect]
     Active Substance: GEMCITABINE
     Dosage: DOSE GIVEN ON DAY 1, 8 AND 15
     Route: 065
     Dates: start: 20230220, end: 20230220
  4. GEMCITABINE [Suspect]
     Active Substance: GEMCITABINE
     Dosage: DOSE GIVEN ON DAY 1, 8 AND 15
     Route: 065
     Dates: start: 20230327, end: 20230327
  5. GEMCITABINE [Suspect]
     Active Substance: GEMCITABINE
     Dosage: DOSE GIVEN ON DAY 1, 8 AND 15
     Route: 065
     Dates: start: 20230109, end: 20230109
  6. GEMCITABINE [Suspect]
     Active Substance: GEMCITABINE
     Dosage: DOSE GIVEN ON DAY 1, 8 AND 15
     Route: 065
     Dates: start: 20230321, end: 20230321
  7. GEMCITABINE [Suspect]
     Active Substance: GEMCITABINE
     Dosage: DOSE GIVEN ON DAY 1, 8 AND 15
     Route: 065
     Dates: start: 20230227, end: 20230227
  8. GEMCITABINE [Suspect]
     Active Substance: GEMCITABINE
     Dosage: DOSE GIVEN ON DAY 1, 8 AND 15
     Route: 065
     Dates: start: 20230206, end: 20230206
  9. GEMCITABINE [Suspect]
     Active Substance: GEMCITABINE
     Dosage: DOSE GIVEN ON DAY 1, 8 AND 15
     Route: 065
     Dates: start: 20230306, end: 20230306
  10. PACLITAXEL [Suspect]
     Active Substance: PACLITAXEL
     Indication: Product used for unknown indication
     Dosage: DOSE GIVEN ON DAY 1, 8 AND 15
     Route: 065
     Dates: start: 20230403, end: 20230403
  11. PACLITAXEL [Suspect]
     Active Substance: PACLITAXEL
     Dosage: DOSE GIVEN ON DAY 1, 8 AND 15
     Route: 065
     Dates: start: 20230206, end: 20230206
  12. PACLITAXEL [Suspect]
     Active Substance: PACLITAXEL
     Dosage: DOSE GIVEN ON DAY 1, 8 AND 15
     Route: 065
     Dates: start: 20230109, end: 20230109
  13. PACLITAXEL [Suspect]
     Active Substance: PACLITAXEL
     Dosage: DOSE GIVEN ON DAY 1, 8 AND 15
     Route: 065
     Dates: start: 20230306, end: 20230306
  14. PACLITAXEL [Suspect]
     Active Substance: PACLITAXEL
     Dosage: DOSE GIVEN ON DAY 1, 8 AND 15
     Route: 065
     Dates: start: 20230321, end: 20230321
  15. PACLITAXEL [Suspect]
     Active Substance: PACLITAXEL
     Dosage: DOSE GIVEN ON DAY 1, 8 AND 15
     Route: 065
     Dates: start: 20230227, end: 20230227
  16. PACLITAXEL [Suspect]
     Active Substance: PACLITAXEL
     Dosage: DOSE GIVEN ON DAY 1, 8 AND 15
     Route: 065
     Dates: start: 20230327, end: 20230327
  17. PACLITAXEL [Suspect]
     Active Substance: PACLITAXEL
     Dosage: DOSE GIVEN ON DAY 1, 8 AND 15
     Route: 065
     Dates: start: 20230116, end: 20230116
  18. PACLITAXEL [Suspect]
     Active Substance: PACLITAXEL
     Dosage: DOSE GIVEN ON DAY 1, 8 AND 15
     Route: 065
     Dates: start: 20230220, end: 20230220
  19. LEVOSULPIRIDE [Concomitant]
     Active Substance: LEVOSULPIRIDE
     Indication: Product used for unknown indication
     Dosage: 3 IN 1 D
     Route: 048
     Dates: start: 202212
  20. OMEPRAZOLE [Concomitant]
     Active Substance: OMEPRAZOLE
     Indication: Product used for unknown indication
     Route: 048
     Dates: start: 202205
  21. LOPERAMIDE [Concomitant]
     Active Substance: LOPERAMIDE
     Indication: Product used for unknown indication
     Dosage: AS REQUIRED
     Route: 048
     Dates: start: 202205
  22. DOMPERIDONE [Concomitant]
     Active Substance: DOMPERIDONE
     Indication: Product used for unknown indication
     Dosage: AS REQUIRED
     Route: 048
     Dates: start: 202212
  23. MEROPENEM [Concomitant]
     Active Substance: MEROPENEM
     Indication: Product used for unknown indication
     Route: 065
     Dates: start: 20230406
  24. IRON [Concomitant]
     Active Substance: IRON
     Indication: Product used for unknown indication
     Dosage: 1 DOSAGE FORMS
     Route: 065
     Dates: start: 20230227
  25. ALBUMIN HUMAN [Concomitant]
     Active Substance: ALBUMIN HUMAN
     Indication: Product used for unknown indication
     Route: 065
  26. HUMAN RED BLOOD CELL [Concomitant]
     Active Substance: HUMAN RED BLOOD CELL
     Indication: Product used for unknown indication
     Dosage: 2 DOSAGE FORM ONCE
     Route: 065
     Dates: start: 20230307, end: 20230307
  27. SPIRONOLACTONE [Concomitant]
     Active Substance: SPIRONOLACTONE
     Indication: Product used for unknown indication
     Route: 048
     Dates: start: 20230130
  28. FUROSEMIDE [Concomitant]
     Active Substance: FUROSEMIDE
     Indication: Product used for unknown indication
     Route: 048
     Dates: start: 20230130
  29. PLATELETS [Concomitant]
     Active Substance: HUMAN PLATELET, ALLOGENIC
     Indication: Product used for unknown indication
     Route: 065
  30. OTILONIUM BROMIDE [Concomitant]
     Active Substance: OTILONIUM BROMIDE
     Indication: Product used for unknown indication
     Dosage: 3 IN 1 D
     Route: 048
     Dates: start: 202212
  31. BROMAZEPAM [Concomitant]
     Active Substance: BROMAZEPAM
     Indication: Product used for unknown indication
     Route: 048
     Dates: start: 202205
  32. CIPROFLOXACIN [Concomitant]
     Active Substance: CIPROFLOXACIN
     Indication: Product used for unknown indication
     Route: 065
  33. ACETAMINOPHEN [Concomitant]
     Active Substance: ACETAMINOPHEN
     Indication: Product used for unknown indication
     Dosage: AS REQUIRED
     Route: 048
     Dates: start: 202205
  34. PANCREATIN [Concomitant]
     Active Substance: PANCRELIPASE
     Indication: Product used for unknown indication
     Dosage: 3 IN 1 D
     Route: 048
     Dates: start: 20230130
  35. FILGRASTIM [Concomitant]
     Active Substance: FILGRASTIM
     Indication: Product used for unknown indication
     Route: 065
  36. BEMIPARIN SODIUM [Concomitant]
     Active Substance: BEMIPARIN SODIUM
     Indication: Product used for unknown indication
     Route: 058
     Dates: start: 20230130
  37. FUROSEMIDE [Concomitant]
     Active Substance: FUROSEMIDE
     Indication: Product used for unknown indication
     Route: 065
  38. ARGININE ASPARTATE [Concomitant]
     Active Substance: ARGININE ASPARTATE
     Indication: Product used for unknown indication
     Route: 048
     Dates: start: 2013

REACTIONS (3)
  - Pyrexia [Recovered/Resolved]
  - Haematotoxicity [Recovered/Resolved]
  - Generalised oedema [Recovered/Resolved]

NARRATIVE: CASE EVENT DATE: 20230406
